FAERS Safety Report 4987790-4 (Version None)
Quarter: 2006Q2

REPORT INFORMATION
  Report Type: 
  Country: None (occurrence: None)
  Receive Date: 20060427
  Receipt Date: 20060427
  Transmission Date: 20061013
  Serious: No
  Sender: FDA-Public Use
  Company Number: None

PATIENT

DRUGS (2)
  1. ADDERALL 10 [Suspect]
     Indication: ATTENTION DEFICIT/HYPERACTIVITY DISORDER
     Dosage: 10 TO 40 MG PO
     Route: 048
  2. ADDERALL 10 [Suspect]
     Indication: BIPOLAR DISORDER
     Dosage: 10 TO 40 MG PO
     Route: 048

REACTIONS (1)
  - DRUG INEFFECTIVE [None]
